FAERS Safety Report 7865969-1 (Version None)
Quarter: 2011Q4

REPORT INFORMATION
  Report Type: 
  Country: None (occurrence: None)
  Receive Date: 20111028
  Receipt Date: 20110330
  Transmission Date: 20120403
  Serious: No
  Sender: FDA-Public Use
  Company Number: US-GLAXOSMITHKLINE-A0920716A

PATIENT
  Age: 84 Year
  Sex: Male

DRUGS (3)
  1. FORMOTEROL FUMARATE [Concomitant]
     Indication: COUGH
  2. MULTIPLE MEDICATIONS [Concomitant]
  3. ADVAIR DISKUS 100/50 [Suspect]
     Indication: DYSPNOEA
     Dosage: 50MCG TWICE PER DAY
     Route: 055
     Dates: start: 20110217

REACTIONS (1)
  - COUGH [None]
